FAERS Safety Report 9537158 (Version 2)
Quarter: 2013Q3

REPORT INFORMATION
  Report Type: Spontaneous
  Country: TW (occurrence: TW)
  Receive Date: 20130919
  Receipt Date: 20130919
  Transmission Date: 20140515
  Serious: Yes (Other)
  Sender: FDA-Public Use
  Company Number: TW-BAXTER-2013BAX031831

PATIENT
  Age: 77 Year
  Sex: Female

DRUGS (1)
  1. BAXTER EXTRANEAL PERITONEAL DIALYSIS SOLUTION WITH 7.5% ICODEXTRIN [Suspect]
     Indication: RENAL FAILURE CHRONIC
     Route: 033

REACTIONS (2)
  - Peritonitis bacterial [Recovered/Resolved]
  - Endocarditis [Recovered/Resolved]
